FAERS Safety Report 5132528-3 (Version None)
Quarter: 2006Q4

REPORT INFORMATION
  Report Type: 
  Country: None (occurrence: None)
  Receive Date: 20061017
  Receipt Date: 20061004
  Transmission Date: 20070319
  Serious: Yes (Hospitalization)
  Sender: FDA-Public Use
  Company Number: 2006SP003817

PATIENT
  Age: 78 Year
  Sex: Male

DRUGS (1)
  1. EULEXIN [Suspect]
     Indication: PROSTATE CANCER
     Dosage: 250 MG; TID;
     Dates: start: 20010101

REACTIONS (2)
  - PITUITARY TUMOUR [None]
  - PROLACTINOMA [None]
